FAERS Safety Report 25932257 (Version 3)
Quarter: 2025Q4

REPORT INFORMATION
  Report Type: Spontaneous
  Country: US (occurrence: US)
  Receive Date: 20251016
  Receipt Date: 20251230
  Transmission Date: 20260118
  Serious: Yes (Other)
  Sender: BLUEPRINT MEDICINES
  Company Number: US-Blueprint Medicines Corporation-2025-AER-02238

PATIENT
  Age: 76 Year
  Sex: Female

DRUGS (2)
  1. AYVAKIT [Suspect]
     Active Substance: AVAPRITINIB
     Indication: Haematopoietic neoplasm
     Route: 065
     Dates: start: 20220211
  2. AYVAKIT [Suspect]
     Active Substance: AVAPRITINIB
     Route: 065
     Dates: start: 20220211

REACTIONS (15)
  - Pseudostroke [Unknown]
  - Eye operation [Unknown]
  - Craniofacial fracture [Recovering/Resolving]
  - Hypoaesthesia [Unknown]
  - Hypoaesthesia oral [Unknown]
  - Nerve compression [Unknown]
  - Fall [Recovering/Resolving]
  - Rash macular [Not Recovered/Not Resolved]
  - Feeling abnormal [Unknown]
  - Alopecia [Unknown]
  - Dry mouth [Unknown]
  - Pruritus [Unknown]
  - Head injury [Recovering/Resolving]
  - Malaise [Unknown]
  - Intentional dose omission [Unknown]

NARRATIVE: CASE EVENT DATE: 20251223
